FAERS Safety Report 15003691 (Version 1)
Quarter: 2018Q2

REPORT INFORMATION
  Report Type: Spontaneous
  Country: IT (occurrence: IT)
  Receive Date: 20180613
  Receipt Date: 20180613
  Transmission Date: 20180711
  Serious: Yes (Other)
  Sender: FDA-Public Use
  Company Number: IT-CONCORDIA PHARMACEUTICALS INC.-GSH201806-001917

PATIENT
  Age: 61 Year
  Sex: Female
  Weight: 61 kg

DRUGS (1)
  1. HYDROXYCHLOROQUINE [Suspect]
     Active Substance: HYDROXYCHLOROQUINE
     Indication: ANTIPHOSPHOLIPID SYNDROME
     Route: 065

REACTIONS (10)
  - Visual impairment [Unknown]
  - Maculopathy [Unknown]
  - Visual field tests abnormal [Unknown]
  - Retinogram abnormal [Unknown]
  - Optical coherence tomography abnormal [Unknown]
  - Retinal disorder [Unknown]
  - Visual acuity reduced [Unknown]
  - Off label use [Unknown]
  - Retinopathy [Unknown]
  - Retinal toxicity [Unknown]
